FAERS Safety Report 11244604 (Version 2)
Quarter: 2015Q3

REPORT INFORMATION
  Report Type: Spontaneous
  Country: US (occurrence: US)
  Receive Date: 20150707
  Receipt Date: 20150728
  Transmission Date: 20151125
  Serious: Yes (Hospitalization, Other)
  Sender: FDA-Public Use
  Company Number: US-SHIRE-US201506790

PATIENT
  Age: 65 Year
  Sex: Male
  Weight: 63.49 kg

DRUGS (6)
  1. MERCAPTOPURIN [Concomitant]
     Indication: CROHN^S DISEASE
  2. LOMOTIL [Concomitant]
     Active Substance: ATROPINE SULFATE\DIPHENOXYLATE HYDROCHLORIDE
     Indication: COLITIS
     Dosage: 5 MG (TWO 2.5 MG TABLETS), 4X/DAY:QID
     Route: 048
  3. LIALDA [Suspect]
     Active Substance: MESALAMINE
     Indication: COLITIS ULCERATIVE
     Dosage: 4.8 G (FOUR 1.2 G TABLETS) :QD
     Route: 048
     Dates: start: 2014
  4. LOMOTIL [Concomitant]
     Active Substance: ATROPINE SULFATE\DIPHENOXYLATE HYDROCHLORIDE
     Indication: CROHN^S DISEASE
  5. MERCAPTOPURIN [Concomitant]
     Indication: COLITIS
     Dosage: 50 MG, 1X/DAY:QD
     Route: 048
     Dates: start: 2014
  6. LIALDA [Suspect]
     Active Substance: MESALAMINE
     Indication: CROHN^S DISEASE

REACTIONS (2)
  - Abscess [Recovered/Resolved]
  - Large intestine perforation [Recovered/Resolved]

NARRATIVE: CASE EVENT DATE: 20150224
